FAERS Safety Report 21589476 (Version 1)
Quarter: 2022Q4

REPORT INFORMATION
  Report Type: Spontaneous
  Country: CN (occurrence: CN)
  Receive Date: 20221114
  Receipt Date: 20221114
  Transmission Date: 20230112
  Serious: Yes (Other)
  Sender: FDA-Public Use
  Company Number: CN-SA-SAC20221111000773

PATIENT
  Age: 65 Year
  Sex: Male

DRUGS (1)
  1. OXALIPLATIN [Suspect]
     Active Substance: OXALIPLATIN
     Indication: Rectal cancer
     Dosage: 183 MG, QD
     Route: 041
     Dates: start: 20221029, end: 20221029

REACTIONS (2)
  - Quadriplegia [Unknown]
  - Asthenia [Unknown]

NARRATIVE: CASE EVENT DATE: 20221029
